FAERS Safety Report 5281604-3 (Version None)
Quarter: 2007Q1

REPORT INFORMATION
  Report Type: 
  Country: None (occurrence: None)
  Receive Date: 20070330
  Receipt Date: 20070319
  Transmission Date: 20070707
  Serious: Yes (Death)
  Sender: FDA-Public Use
  Company Number: FR-BAYER-200710193BFR

PATIENT
  Age: 14 Year
  Sex: Male

DRUGS (1)
  1. TRASYLOL [Suspect]
     Indication: HAEMORRHAGE CONTROL
     Dates: start: 20040101, end: 20040101

REACTIONS (2)
  - ANAPHYLACTIC REACTION [None]
  - CARDIAC FAILURE [None]
